FAERS Safety Report 16091197 (Version 1)
Quarter: 2019Q1

REPORT INFORMATION
  Report Type: Spontaneous
  Country: AU (occurrence: AU)
  Receive Date: 20190319
  Receipt Date: 20190319
  Transmission Date: 20190418
  Serious: Yes (Other)
  Sender: FDA-Public Use
  Company Number: AU-SAOL THERAPEUTICS-2019SAO00080

PATIENT

DRUGS (2)
  1. RHO D IMMUNE GLOBULIN [Suspect]
     Active Substance: HUMAN RHO(D) IMMUNE GLOBULIN
     Dosage: ONCE, AT 34 WEEKS GESTATION
     Route: 064
  2. RHO D IMMUNE GLOBULIN [Suspect]
     Active Substance: HUMAN RHO(D) IMMUNE GLOBULIN
     Indication: PROPHYLAXIS AGAINST RH ISOIMMUNISATION
     Dosage: ONCE, AT 28 WEEKS GESTATION
     Route: 064

REACTIONS (3)
  - Sinusoidal foetal heart rate pattern [Unknown]
  - Haemolysis [Unknown]
  - Foetal exposure during pregnancy [Unknown]
